FAERS Safety Report 10014938 (Version 3)
Quarter: 2014Q2

REPORT INFORMATION
  Report Type: Spontaneous
  Country: US (occurrence: US)
  Receive Date: 20140317
  Receipt Date: 20140613
  Transmission Date: 20141212
  Serious: Yes (Hospitalization, Other)
  Sender: FDA-Public Use
  Company Number: US-GILEAD-2014-0096713

PATIENT
  Sex: Female

DRUGS (8)
  1. LETAIRIS [Suspect]
     Indication: PULMONARY HYPERTENSION
     Dosage: 10 MG, QD
     Route: 048
     Dates: start: 20100719
  2. LETAIRIS [Suspect]
     Indication: CONNECTIVE TISSUE DISORDER
  3. LETAIRIS [Suspect]
     Indication: CARDIAC FAILURE CONGESTIVE
  4. LETAIRIS [Suspect]
     Indication: FLUID OVERLOAD
  5. LETAIRIS [Suspect]
     Indication: RIGHT VENTRICULAR FAILURE
  6. LETAIRIS [Suspect]
     Indication: SCLERODERMA
  7. REMODULIN [Concomitant]
  8. REVATIO [Concomitant]

REACTIONS (1)
  - Pulmonary arterial hypertension [Unknown]
